FAERS Safety Report 13305175 (Version 1)
Quarter: 2017Q1

REPORT INFORMATION
  Report Type: Report from Study
  Country: BE (occurrence: BE)
  Receive Date: 20170308
  Receipt Date: 20170308
  Transmission Date: 20170428
  Serious: Yes (Death, Hospitalization)
  Sender: FDA-Public Use
  Company Number: PHHY2017BE035029

PATIENT
  Age: 82 Year
  Sex: Female

DRUGS (1)
  1. AFINITOR [Suspect]
     Active Substance: EVEROLIMUS
     Indication: BREAST CANCER
     Dosage: 5 MG, QD
     Route: 048
     Dates: start: 20170217

REACTIONS (3)
  - Blood pressure decreased [Fatal]
  - Pulse absent [Fatal]
  - Malaise [Fatal]

NARRATIVE: CASE EVENT DATE: 20170225
